FAERS Safety Report 6828078-6 (Version None)
Quarter: 2010Q3

REPORT INFORMATION
  Report Type: 
  Country: None (occurrence: None)
  Receive Date: 20100708
  Receipt Date: 20100708
  Transmission Date: 20110219
  Serious: Yes (Hospitalization)
  Sender: FDA-Public Use
  Company Number: None

PATIENT

DRUGS (1)
  1. YASMIN [Suspect]
     Dosage: 1 DAILY PO
     Route: 048
     Dates: start: 20040101, end: 20100207

REACTIONS (3)
  - CHOLELITHIASIS [None]
  - DEEP VEIN THROMBOSIS [None]
  - PULMONARY EMBOLISM [None]
